FAERS Safety Report 23225449 (Version 1)
Quarter: 2023Q4

REPORT INFORMATION
  Report Type: Spontaneous
  Country: CA (occurrence: CA)
  Receive Date: 20231124
  Receipt Date: 20231124
  Transmission Date: 20240109
  Serious: Yes (Other)
  Sender: FDA-Public Use
  Company Number: CA-ABBVIE-5504934

PATIENT
  Age: 54 Year
  Sex: Female
  Weight: 59 kg

DRUGS (9)
  1. MESALAMINE [Suspect]
     Active Substance: MESALAMINE
     Indication: Haematochezia
     Route: 065
  2. INFLECTRA [Concomitant]
     Active Substance: INFLIXIMAB-DYYB
     Indication: Crohn^s disease
  3. INFLECTRA [Concomitant]
     Active Substance: INFLIXIMAB-DYYB
     Indication: Crohn^s disease
     Dosage: LAST ADMIN DATE: 2022
     Dates: start: 20220727
  4. INFLECTRA [Concomitant]
     Active Substance: INFLIXIMAB-DYYB
     Indication: Crohn^s disease
     Dosage: LAST ADMIN DATE: 2022
     Dates: start: 20220505
  5. INFLECTRA [Concomitant]
     Active Substance: INFLIXIMAB-DYYB
     Indication: Crohn^s disease
     Dosage: LAST ADMIN DATE: 2023
     Dates: start: 20230110
  6. INFLECTRA [Concomitant]
     Active Substance: INFLIXIMAB-DYYB
     Indication: Crohn^s disease
     Dosage: LAST ADMIN DATE: 2022
     Dates: start: 20220324
  7. INFLECTRA [Concomitant]
     Active Substance: INFLIXIMAB-DYYB
     Indication: Crohn^s disease
     Dosage: LAST ADMIN DATE: 2023
     Dates: start: 20230630
  8. INFLECTRA [Concomitant]
     Active Substance: INFLIXIMAB-DYYB
     Indication: Crohn^s disease
     Dosage: LAST ADMIN DATE: 2022
     Dates: start: 20220615
  9. INFLECTRA [Concomitant]
     Active Substance: INFLIXIMAB-DYYB
     Indication: Crohn^s disease
     Dates: start: 20230920

REACTIONS (6)
  - Haematochezia [Not Recovered/Not Resolved]
  - Vomiting [Recovered/Resolved]
  - Frequent bowel movements [Unknown]
  - Dyspepsia [Recovered/Resolved]
  - Mucous stools [Unknown]
  - Nausea [Recovered/Resolved]

NARRATIVE: CASE EVENT DATE: 20220502
